FAERS Safety Report 7121466-2 (Version None)
Quarter: 2010Q4

REPORT INFORMATION
  Report Type: 
  Country: None (occurrence: None)
  Receive Date: 20101124
  Receipt Date: 20101118
  Transmission Date: 20110411
  Serious: Yes (Other)
  Sender: FDA-Public Use
  Company Number: CHPA2010US17941

PATIENT
  Age: 34 Year
  Sex: Male
  Weight: 104.31 kg

DRUGS (2)
  1. PRIVATE LABEL (NCH) [Suspect]
     Indication: SMOKING CESSATION THERAPY
     Dosage: 21 MG, QD
     Route: 062
     Dates: start: 20101118
  2. PRIVATE LABEL (NCH) [Suspect]
     Dosage: 21 MG, QD
     Route: 062
     Dates: start: 20080101, end: 20080101

REACTIONS (2)
  - EXPIRED DRUG ADMINISTERED [None]
  - HEPATIC CIRRHOSIS [None]
